FAERS Safety Report 21174129 (Version 1)
Quarter: 2022Q3

REPORT INFORMATION
  Report Type: Spontaneous
  Country: US (occurrence: US)
  Receive Date: 20220804
  Receipt Date: 20220804
  Transmission Date: 20221027
  Serious: Yes (Death, Other)
  Sender: FDA-Public Use
  Company Number: US-TEVA-2022-US-2060077

PATIENT

DRUGS (7)
  1. DEXAMETHASONE [Suspect]
     Active Substance: DEXAMETHASONE
     Indication: Cutaneous T-cell lymphoma
     Dosage: ADMINISTERED UNDER THE HYPER CVAD CHEMOTHERAPY REGIMEN
     Route: 065
  2. VINCRISTINE [Suspect]
     Active Substance: VINCRISTINE
     Indication: Cutaneous T-cell lymphoma
     Dosage: ADMINISTERED UNDER THE HYPER CVAD CHEMOTHERAPY REGIMEN
     Route: 065
  3. DOXORUBICIN [Suspect]
     Active Substance: DOXORUBICIN
     Indication: Cutaneous T-cell lymphoma
     Dosage: ADMINISTERED UNDER THE HYPER CVAD CHEMOTHERAPY REGIMEN
     Route: 065
  4. ROMIDEPSIN [Suspect]
     Active Substance: ROMIDEPSIN
     Indication: Cutaneous T-cell lymphoma
     Route: 065
  5. NITROGEN MUSTARD [Suspect]
     Active Substance: MECHLORETHAMINE OXIDE HYDROCHLORIDE
     Indication: Cutaneous T-cell lymphoma
     Route: 065
  6. CYCLOPHOSPHAMIDE [Suspect]
     Active Substance: CYCLOPHOSPHAMIDE
     Indication: Cutaneous T-cell lymphoma
     Dosage: ADMINISTERED UNDER THE HYPER CVAD CHEMOTHERAPY REGIMEN
     Route: 065
  7. ALEMTUZUMAB [Suspect]
     Active Substance: ALEMTUZUMAB
     Indication: Cutaneous T-cell lymphoma
     Route: 065

REACTIONS (1)
  - Drug ineffective [Fatal]
